FAERS Safety Report 7370493-9 (Version None)
Quarter: 2011Q1

REPORT INFORMATION
  Report Type: 
  Country: None (occurrence: None)
  Receive Date: 20110323
  Receipt Date: 20110314
  Transmission Date: 20110831
  Serious: Yes (Hospitalization, Disabling)
  Sender: FDA-Public Use
  Company Number: US-ASTRAZENECA-2011SE14054

PATIENT
  Age: 41 Year
  Sex: Female

DRUGS (12)
  1. SEROQUEL [Suspect]
     Indication: SLEEP APNOEA SYNDROME
     Route: 048
     Dates: start: 20101101
  2. NEXIUM [Suspect]
     Indication: GASTROOESOPHAGEAL REFLUX DISEASE
     Route: 048
  3. POTASSIUM CHLORIDE [Concomitant]
  4. SEROQUEL [Suspect]
     Route: 048
     Dates: end: 20101101
  5. LISINOPRIL [Concomitant]
  6. SEROQUEL [Suspect]
     Route: 048
  7. CUBICIN [Concomitant]
     Indication: THROMBOSIS PROPHYLAXIS
  8. SEROQUEL [Suspect]
     Indication: BIPOLAR DISORDER
     Route: 048
     Dates: start: 20101101
  9. SEROQUEL [Suspect]
     Route: 048
     Dates: end: 20101101
  10. SEROQUEL [Suspect]
     Route: 048
  11. EFFEXOR [Concomitant]
  12. NEURONTIN [Concomitant]

REACTIONS (12)
  - ANGER [None]
  - AGITATION [None]
  - IRRITABILITY [None]
  - NEUROPATHY PERIPHERAL [None]
  - MUSCULOSKELETAL DISCOMFORT [None]
  - OFF LABEL USE [None]
  - SYSTEMIC LUPUS ERYTHEMATOSUS [None]
  - FALL [None]
  - HIP SURGERY [None]
  - GOUT [None]
  - WALKING AID USER [None]
  - MUSCULAR WEAKNESS [None]
